FAERS Safety Report 25931773 (Version 1)
Quarter: 2025Q4

REPORT INFORMATION
  Report Type: Spontaneous
  Country: KR (occurrence: KR)
  Receive Date: 20251016
  Receipt Date: 20251016
  Transmission Date: 20260117
  Serious: Yes (Hospitalization)
  Sender: IPSEN BIOPHARMACEUTICALS, INC.
  Company Number: KR-KOREA IPSEN Pharma-2025-25343

PATIENT
  Age: 1 Year
  Sex: Male

DRUGS (1)
  1. BYLVAY [Suspect]
     Active Substance: ODEVIXIBAT
     Indication: Progressive familial intrahepatic cholestasis

REACTIONS (2)
  - C-reactive protein increased [Unknown]
  - Pyrexia [Unknown]
